FAERS Safety Report 5943460-7 (Version None)
Quarter: 2008Q4

REPORT INFORMATION
  Report Type: 
  Country: None (occurrence: None)
  Receive Date: 20081105
  Receipt Date: 20081105
  Transmission Date: 20090506
  Serious: Yes (Life-Threatening)
  Sender: FDA-Public Use
  Company Number: None

PATIENT
  Age: 50 Year
  Sex: Female
  Weight: 54.4316 kg

DRUGS (1)
  1. ZOCOR [Suspect]
     Indication: BLOOD CHOLESTEROL INCREASED
     Dosage: 20MG PO
     Route: 048
     Dates: start: 20060101, end: 20081103

REACTIONS (5)
  - ASTHENIA [None]
  - MYALGIA [None]
  - PALPITATIONS [None]
  - RENAL FAILURE CHRONIC [None]
  - TINNITUS [None]
